FAERS Safety Report 15879910 (Version 1)
Quarter: 2019Q1

REPORT INFORMATION
  Report Type: Spontaneous
  Country: IT (occurrence: IT)
  Receive Date: 20190128
  Receipt Date: 20190128
  Transmission Date: 20190417
  Serious: Yes (Death, Other)
  Sender: FDA-Public Use
  Company Number: IT-BAYER-200410402GDS

PATIENT
  Age: 78 Year
  Sex: Male

DRUGS (10)
  1. LOSARTAN. [Concomitant]
     Active Substance: LOSARTAN
     Indication: UNEVALUABLE EVENT
     Dosage: 50 MG, QD
     Route: 048
  2. COUMADIN [Concomitant]
     Active Substance: WARFARIN SODIUM
     Indication: UNEVALUABLE EVENT
     Dosage: 2.5 MG, QD
     Route: 048
  3. KCL [Concomitant]
     Active Substance: POTASSIUM CHLORIDE
     Indication: UNEVALUABLE EVENT
     Dosage: 40 MEQ, QD
     Route: 042
  4. BAMIFYLLINE [Concomitant]
     Active Substance: BAMIFYLLINE
     Indication: UNEVALUABLE EVENT
     Dosage: 1200 MG, UNK
     Route: 048
  5. FUROSEMIDE. [Concomitant]
     Active Substance: FUROSEMIDE
     Indication: UNEVALUABLE EVENT
     Dosage: 100 MG, QD
     Route: 048
  6. POTASSIUM CHLORIDE. [Concomitant]
     Active Substance: POTASSIUM CHLORIDE
     Indication: UNEVALUABLE EVENT
     Dosage: 40 MEQ, UNK
     Route: 042
  7. POTASSIUM CANRENOATE [Concomitant]
     Active Substance: CANRENOATE POTASSIUM
     Indication: UNEVALUABLE EVENT
     Dosage: 100 MG, UNK
     Route: 048
  8. CIPROFLOXACIN MONOHYDROCHLORIDE [Suspect]
     Active Substance: CIPROFLOXACIN
     Route: 048
     Dates: start: 20040109, end: 20040111
  9. AMIODARONE [Concomitant]
     Active Substance: AMIODARONE
     Indication: UNEVALUABLE EVENT
     Dosage: 200 MG, UNK
     Route: 048
  10. AMIODARONE [Concomitant]
     Active Substance: AMIODARONE
     Indication: UNEVALUABLE EVENT
     Dosage: 200 MG, UNK
     Route: 048

REACTIONS (3)
  - Disseminated intravascular coagulation [Unknown]
  - Toxic epidermal necrolysis [Fatal]
  - Thrombocytopenia [Unknown]

NARRATIVE: CASE EVENT DATE: 20040111
